FAERS Safety Report 7826880-5 (Version None)
Quarter: 2011Q4

REPORT INFORMATION
  Report Type: 
  Country: None (occurrence: None)
  Receive Date: 20111020
  Receipt Date: 20111010
  Transmission Date: 20120403
  Serious: Yes (Other)
  Sender: FDA-Public Use
  Company Number: SK-JNJFOC-20110910047

PATIENT
  Sex: Female
  Weight: 90 kg

DRUGS (7)
  1. REMICADE [Suspect]
     Indication: CROHN'S DISEASE
     Dosage: 1ST INFUSION
     Route: 042
     Dates: start: 20100826
  2. PENTASA [Concomitant]
     Indication: COLITIS ULCERATIVE
     Route: 048
  3. MALTOFER [Concomitant]
     Route: 048
  4. REMICADE [Suspect]
     Route: 042
     Dates: start: 20110721
  5. REMICADE [Suspect]
     Route: 042
     Dates: start: 20110928
  6. VITACALCIN [Concomitant]
     Route: 048
  7. VIGANTOL [Concomitant]
     Route: 048

REACTIONS (2)
  - MATERNAL EXPOSURE DURING PREGNANCY [None]
  - TOXOPLASMA SEROLOGY POSITIVE [None]
